FAERS Safety Report 8572454-0 (Version None)
Quarter: 2012Q2

REPORT INFORMATION
  Report Type: 
  Country: None (occurrence: None)
  Receive Date: 20120423
  Receipt Date: 20090908
  Transmission Date: 20120825
  Serious: Yes (Other)
  Sender: FDA-Public Use
  Company Number: PHEH2009US10536

PATIENT
  Age: 18 Year
  Sex: Male
  Weight: 52 kg

DRUGS (6)
  1. EXJADE [Suspect]
     Indication: THALASSAEMIA
     Dosage: 750 MG DAILY, ORAL
     Route: 048
     Dates: start: 20070301
  2. EXJADE [Suspect]
     Indication: IRON OVERLOAD
     Dosage: 750 MG DAILY, ORAL
     Route: 048
     Dates: start: 20070301
  3. TYLENOL W/ CODEINE NO. 3 [Concomitant]
  4. MOTRIN [Concomitant]
  5. VERAPAMIL [Concomitant]
  6. LORATADINE [Concomitant]

REACTIONS (5)
  - PROTEINURIA [None]
  - MICROALBUMINURIA [None]
  - WHITE BLOOD CELLS URINE POSITIVE [None]
  - TREATMENT NONCOMPLIANCE [None]
  - BACTERIAL TEST [None]
